FAERS Safety Report 6301390-5 (Version None)
Quarter: 2009Q3

REPORT INFORMATION
  Report Type: 
  Country: None (occurrence: None)
  Receive Date: 20090807
  Receipt Date: 20090723
  Transmission Date: 20100115
  Serious: Yes (Hospitalization)
  Sender: FDA-Public Use
  Company Number: US-RB-019016-09

PATIENT
  Age: 66 Year
  Sex: Female

DRUGS (5)
  1. MUCINEX [Suspect]
     Route: 048
     Dates: start: 20090718
  2. PAXIL [Concomitant]
  3. ASPIRIN [Concomitant]
  4. WELCHOL [Concomitant]
  5. WARFARIN SODIUM [Concomitant]

REACTIONS (1)
  - HAEMOPTYSIS [None]
